FAERS Safety Report 9885387 (Version 1)
Quarter: 2014Q1

REPORT INFORMATION
  Report Type: Spontaneous
  Country: US (occurrence: US)
  Receive Date: 20140210
  Receipt Date: 20140210
  Transmission Date: 20141002
  Serious: No
  Sender: FDA-Public Use
  Company Number: US-PFIZER INC-2014037114

PATIENT
  Age: 40 Year
  Sex: Female
  Weight: 122 kg

DRUGS (2)
  1. ZOLOFT [Suspect]
     Indication: DEPRESSION
     Dosage: 100 MG, DAILY
     Dates: start: 2013
  2. METOPROLOL [Concomitant]
     Indication: CARDIAC DISORDER
     Dosage: 0.5 MG, AS NEEDED

REACTIONS (3)
  - Fibromyalgia [Unknown]
  - Muscle spasms [Unknown]
  - Gastric disorder [Unknown]
